FAERS Safety Report 10181881 (Version 1)
Quarter: 2014Q2

REPORT INFORMATION
  Report Type: Spontaneous
  Country: US (occurrence: US)
  Receive Date: 20140519
  Receipt Date: 20140519
  Transmission Date: 20141212
  Serious: No
  Sender: FDA-Public Use
  Company Number: US-ASTRAZENECA-2014SE16629

PATIENT
  Age: 75 Year
  Sex: Male
  Weight: 93 kg

DRUGS (8)
  1. ATACAND [Suspect]
     Indication: BLOOD PRESSURE ABNORMAL
     Route: 048
  2. ATACAND [Suspect]
     Indication: BLOOD PRESSURE ABNORMAL
     Route: 048
     Dates: start: 201108, end: 2013
  3. ATACAND [Suspect]
     Indication: BLOOD PRESSURE ABNORMAL
     Dosage: GENERIC 32 MGDAILY
     Route: 048
     Dates: start: 2013
  4. ATACAND [Suspect]
     Indication: BLOOD PRESSURE ABNORMAL
     Route: 048
     Dates: start: 2014
  5. AMLODIPINE [Suspect]
     Indication: BLOOD PRESSURE ABNORMAL
     Route: 065
     Dates: start: 2012
  6. AMLODIPINE [Suspect]
     Indication: BLOOD PRESSURE ABNORMAL
     Route: 065
  7. XANAX [Concomitant]
     Indication: ANXIETY
     Dosage: UNKNOWN PRN
  8. LIPITOR [Concomitant]
     Dosage: UNKNOWN DAILY
     Dates: start: 2004

REACTIONS (10)
  - Hypertension [Unknown]
  - Hypersensitivity [Not Recovered/Not Resolved]
  - Discomfort [Not Recovered/Not Resolved]
  - Fluid retention [Unknown]
  - Joint swelling [Unknown]
  - Hypotension [Unknown]
  - Rash [Not Recovered/Not Resolved]
  - Pruritus [Not Recovered/Not Resolved]
  - Product substitution issue [Unknown]
  - Drug ineffective [Unknown]
